FAERS Safety Report 7808498-3 (Version None)
Quarter: 2011Q4

REPORT INFORMATION
  Report Type: 
  Country: None (occurrence: None)
  Receive Date: 20111006
  Receipt Date: 20110922
  Transmission Date: 20120403
  Serious: Yes (Hospitalization)
  Sender: FDA-Public Use
  Company Number: 1000024331

PATIENT
  Age: 94 Year
  Sex: Female

DRUGS (5)
  1. ZANTAC [Concomitant]
  2. AMLODIPINE [Concomitant]
  3. MEMANTINE [Suspect]
     Indication: DEMENTIA ALZHEIMER'S TYPE
     Dosage: 5 MG (5 MG, 1 IN 1 D), ORAL
     Route: 048
     Dates: start: 20110706, end: 20110713
  4. ARICEPT [Concomitant]
  5. PEON (ZALTOPROFEN) (ZALTOPROFEN) [Concomitant]

REACTIONS (9)
  - STUPOR [None]
  - INCREASED UPPER AIRWAY SECRETION [None]
  - DYSPHAGIA [None]
  - SOMNOLENCE [None]
  - ALTERED STATE OF CONSCIOUSNESS [None]
  - JOINT SWELLING [None]
  - PHARYNGEAL STENOSIS [None]
  - PYREXIA [None]
  - PNEUMONIA [None]
